FAERS Safety Report 23902521 (Version 1)
Quarter: 2024Q2

REPORT INFORMATION
  Report Type: Spontaneous
  Country: US (occurrence: US)
  Receive Date: 20240527
  Receipt Date: 20240527
  Transmission Date: 20240716
  Serious: Yes (Life-Threatening, Hospitalization, Other)
  Sender: FDA-Public Use
  Company Number: US-ENDO USA, INC.-2024-002190

PATIENT
  Age: 48 Year
  Sex: Male

DRUGS (2)
  1. PERCOCET [Suspect]
     Active Substance: ACETAMINOPHEN\OXYCODONE HYDROCHLORIDE
     Indication: Product used for unknown indication
     Dosage: UNK UNKNOWN, UNKNOWN
     Route: 048
  2. COCAINE [Suspect]
     Active Substance: COCAINE
     Indication: Product used for unknown indication
     Dosage: UNK UNKNOWN, UNKNOWN
     Route: 065

REACTIONS (8)
  - Toxic leukoencephalopathy [Not Recovered/Not Resolved]
  - Loss of consciousness [Unknown]
  - Hypertension [Unknown]
  - Tachycardia [Unknown]
  - Tachypnoea [Unknown]
  - Pyrexia [Unknown]
  - Rhabdomyolysis [Unknown]
  - Overdose [Unknown]
